FAERS Safety Report 7177360-4 (Version None)
Quarter: 2010Q4

REPORT INFORMATION
  Report Type: 
  Country: None (occurrence: None)
  Receive Date: 20101220
  Receipt Date: 20101207
  Transmission Date: 20110411
  Serious: Yes (Other)
  Sender: FDA-Public Use
  Company Number: PHHY2010US58384

PATIENT
  Sex: Female
  Weight: 72.109 kg

DRUGS (5)
  1. RECLAST [Suspect]
     Indication: OSTEOPOROSIS
     Dosage: 5 MG, 15 MIN ONCE A YEAR
     Dates: start: 20100714, end: 20100714
  2. SYNTHROID [Concomitant]
     Indication: HYPOTHYROIDISM
     Dosage: 9 AM YEARS
     Route: 048
  3. CYTOMEL [Concomitant]
     Indication: HYPOTHYROIDISM
     Dosage: 9 AM YEARS
     Route: 048
  4. ADDERALL 10 [Concomitant]
     Indication: HYPERSOMNIA
     Dosage: 9 AM YEARS
     Route: 048
  5. IMITREX [Concomitant]
     Indication: MIGRAINE
     Dosage: YEARS PRN
     Route: 048

REACTIONS (9)
  - BONE PAIN [None]
  - DYSSTASIA [None]
  - FACIAL BONES FRACTURE [None]
  - FALL [None]
  - INTERVERTEBRAL DISC DEGENERATION [None]
  - LOSS OF CONSCIOUSNESS [None]
  - MULTIPLE FRACTURES [None]
  - MYALGIA [None]
  - WHIPLASH INJURY [None]
